FAERS Safety Report 11385616 (Version 1)
Quarter: 2015Q3

REPORT INFORMATION
  Report Type: Spontaneous
  Country: US (occurrence: US)
  Receive Date: 20150817
  Receipt Date: 20150817
  Transmission Date: 20151125
  Serious: Yes (Other)
  Sender: FDA-Public Use
  Company Number: US-CIPLA LTD.-2015US06544

PATIENT

DRUGS (7)
  1. TENOFOVIR ALAFENAMIDE [Suspect]
     Active Substance: TENOFOVIR ALAFENAMIDE
     Indication: HIV INFECTION
     Dosage: ONCE DAILY FOR 48 WEEKS
     Route: 065
  2. COBICISTAT [Suspect]
     Active Substance: COBICISTAT
     Indication: HIV INFECTION
     Dosage: ONCE DAILY FOR 48 WEEKS
     Route: 065
  3. DARUNAVIR PLACEBO [Suspect]
     Active Substance: DARUNAVIR
     Indication: HIV INFECTION
     Dosage: 400 MG,ONCE DAILY FOR 48 WEEKS
     Route: 065
  4. TENOFOVIR DISOFOXIL FUMARATE [Suspect]
     Active Substance: TENOFOVIR DISOPROXIL FUMARATE
     Indication: HIV INFECTION
     Dosage: TOTAL OF 5 TABLETS DAILY, FOR 48 WEEKS
     Route: 065
  5. COBI PLACEBO (COBICISTAT) [Suspect]
     Active Substance: COBICISTAT
     Indication: HIV INFECTION
     Dosage: ONCE DAILY FOR 48 WEEKS
     Route: 065
  6. EMTRICITABINE [Suspect]
     Active Substance: EMTRICITABINE
     Indication: HIV INFECTION
     Dosage: ONCE DAILY FOR 48 WEEKS
     Route: 065
  7. DARUNAVIR [Suspect]
     Active Substance: DARUNAVIR
     Indication: HIV INFECTION
     Dosage: ONCE DAILY FOR 48 WEEKS
     Route: 065

REACTIONS (2)
  - Rash [Unknown]
  - Dependence [Unknown]
